FAERS Safety Report 15962290 (Version 3)
Quarter: 2019Q3

REPORT INFORMATION
  Report Type: Report from Study
  Country: US (occurrence: US)
  Receive Date: 20190214
  Receipt Date: 20190911
  Transmission Date: 20191004
  Serious: Yes (Other)
  Sender: FDA-Public Use
  Company Number: PHEH2019US006497

PATIENT
  Sex: Male

DRUGS (1)
  1. ENTRESTO [Suspect]
     Active Substance: SACUBITRIL\VALSARTAN
     Indication: CARDIAC FAILURE
     Dosage: UNK
     Route: 048

REACTIONS (9)
  - Hypoxia [Unknown]
  - Atypical pneumonia [Unknown]
  - Dizziness [Unknown]
  - Hypoaesthesia [Unknown]
  - Hypotension [Unknown]
  - Malaise [Unknown]
  - Dehydration [Unknown]
  - Feeling abnormal [Unknown]
  - Influenza [Unknown]
